FAERS Safety Report 15814127 (Version 1)
Quarter: 2019Q1

REPORT INFORMATION
  Report Type: Spontaneous
  Country: US (occurrence: US)
  Receive Date: 20190111
  Receipt Date: 20190111
  Transmission Date: 20190417
  Serious: No
  Sender: FDA-Public Use
  Company Number: US-JAZZ-2018-US-008206

PATIENT
  Age: 47 Year
  Sex: Male

DRUGS (6)
  1. BACLOFEN. [Suspect]
     Active Substance: BACLOFEN
     Indication: PRODUCT USED FOR UNKNOWN INDICATION
     Dosage: 63.045 ?G, QH
     Route: 037
  2. PRIALT [Suspect]
     Active Substance: ZICONOTIDE ACETATE
     Indication: PRODUCT USED FOR UNKNOWN INDICATION
     Dosage: 0.162 ?G, QH
     Route: 037
  3. BACLOFEN. [Suspect]
     Active Substance: BACLOFEN
     Dosage: 56.77 ?G, QH
     Route: 037
     Dates: start: 201805
  4. DILAUDID [Suspect]
     Active Substance: HYDROMORPHONE HYDROCHLORIDE
     Indication: PRODUCT USED FOR UNKNOWN INDICATION
     Dosage: 0.008 MG, QH
     Route: 037
  5. PRIALT [Suspect]
     Active Substance: ZICONOTIDE ACETATE
     Dosage: 0.15 ?G, QH
     Route: 037
     Dates: start: 201805
  6. DILAUDID [Suspect]
     Active Substance: HYDROMORPHONE HYDROCHLORIDE
     Dosage: 0.007 MG, QH
     Route: 037
     Dates: start: 201805

REACTIONS (1)
  - Hallucination [Unknown]

NARRATIVE: CASE EVENT DATE: 20180518
